FAERS Safety Report 7013088-9 (Version None)
Quarter: 2010Q3

REPORT INFORMATION
  Report Type: 
  Country: None (occurrence: None)
  Receive Date: 20100924
  Receipt Date: 20100914
  Transmission Date: 20110219
  Serious: Yes (Other)
  Sender: FDA-Public Use
  Company Number: US-PFIZER INC-2010116374

PATIENT
  Sex: Female
  Weight: 63.5 kg

DRUGS (3)
  1. LYRICA [Suspect]
     Indication: FIBROMYALGIA
     Dosage: 25 MG, 1X/DAY
     Route: 048
  2. CYMBALTA [Suspect]
     Indication: PAIN
     Dosage: UNK
     Route: 048
  3. CYMBALTA [Suspect]
     Indication: DEPRESSION

REACTIONS (2)
  - BREAST CANCER FEMALE [None]
  - VOMITING [None]
